FAERS Safety Report 20058364 (Version 10)
Quarter: 2022Q3

REPORT INFORMATION
  Report Type: Report from Study
  Country: CO (occurrence: CO)
  Receive Date: 20211111
  Receipt Date: 20220711
  Transmission Date: 20221026
  Serious: Yes (Other)
  Sender: FDA-Public Use
  Company Number: CO-NOVARTISPH-NVSC2020CO301104

PATIENT
  Age: 48 Year
  Sex: Female
  Weight: 78 kg

DRUGS (9)
  1. KISQALI [Suspect]
     Active Substance: RIBOCICLIB
     Indication: Breast cancer metastatic
     Dosage: 600 MG, Q24H (STARTED APPROXIMATELY 9 MONTHS AGO)
     Route: 048
  2. KISQALI [Suspect]
     Active Substance: RIBOCICLIB
     Dosage: 600 MG, QD
     Route: 048
     Dates: start: 2019, end: 202110
  3. FEMARA [Suspect]
     Active Substance: LETROZOLE
     Indication: Breast cancer
     Dosage: 2.5 MG, Q24H (STARTED APPROXIMATELY 9 MONTHS)
     Route: 048
  4. FEMARA [Suspect]
     Active Substance: LETROZOLE
     Dosage: 2.5 MG, QD
     Route: 048
     Dates: start: 2019
  5. FEMARA [Suspect]
     Active Substance: LETROZOLE
     Dosage: 2.5 MG, Q24H
     Route: 048
     Dates: start: 20201124
  6. FEMARA [Suspect]
     Active Substance: LETROZOLE
     Dosage: 2.5 MG, QD
     Route: 048
     Dates: end: 202110
  7. ZOLEDRONIC ACID [Suspect]
     Active Substance: ZOLEDRONIC ACID
     Indication: Metastases to bone
     Dosage: UNK, QMO
     Route: 042
     Dates: start: 2019, end: 202112
  8. ZOLEDRONIC ACID [Suspect]
     Active Substance: ZOLEDRONIC ACID
     Dosage: 4 MG, QMO
     Route: 048
     Dates: start: 20201124
  9. GOSERELIN ACETATE [Concomitant]
     Active Substance: GOSERELIN ACETATE
     Indication: Product used for unknown indication
     Dosage: UNK, Q3MO
     Route: 065
     Dates: start: 2019

REACTIONS (29)
  - Breast cancer metastatic [Unknown]
  - Malignant neoplasm progression [Unknown]
  - Metastasis [Unknown]
  - Neoplasm malignant [Unknown]
  - Breast haemorrhage [Unknown]
  - Breast mass [Unknown]
  - Tumour marker increased [Unknown]
  - Malaise [Unknown]
  - Stress [Unknown]
  - Pain [Unknown]
  - Lymphadenopathy [Unknown]
  - Inflammation [Unknown]
  - COVID-19 [Unknown]
  - Condition aggravated [Unknown]
  - Illness [Unknown]
  - Breast pain [Unknown]
  - Synovial cyst [Unknown]
  - Decreased immune responsiveness [Unknown]
  - Alopecia [Unknown]
  - Erythema [Not Recovered/Not Resolved]
  - Fatigue [Unknown]
  - Discouragement [Unknown]
  - Anger [Unknown]
  - Red blood cell count decreased [Unknown]
  - Axillary mass [Unknown]
  - Lymphadenitis [Unknown]
  - Product supply issue [Unknown]
  - Feeling abnormal [Unknown]
  - Breast disorder [Unknown]

NARRATIVE: CASE EVENT DATE: 20220517
